FAERS Safety Report 23769235 (Version 1)
Quarter: 2024Q2

REPORT INFORMATION
  Report Type: Spontaneous
  Country: US (occurrence: US)
  Receive Date: 20240422
  Receipt Date: 20240422
  Transmission Date: 20240716
  Serious: No
  Sender: FDA-Public Use
  Company Number: US-PFIZER INC-PV202400041212

PATIENT
  Age: 89 Year
  Sex: Female

DRUGS (1)
  1. IBRANCE [Suspect]
     Active Substance: PALBOCICLIB
     Indication: Breast cancer female
     Dosage: 75 MG, DAILY (TAKE 1 TABLET BY MOUTH DAILY FOR 21 DAYS THEN OFF 14 DAYS OF A 35-DAY CYCLE)
     Route: 048

REACTIONS (2)
  - Nausea [Recovered/Resolved]
  - Off label use [Unknown]
